FAERS Safety Report 17625666 (Version 4)
Quarter: 2020Q2

REPORT INFORMATION
  Report Type: Report from Study
  Country: None (occurrence: IL)
  Receive Date: 20200404
  Receipt Date: 20200514
  Transmission Date: 20200713
  Serious: Yes (Death, Hospitalization, Other)
  Sender: FDA-Public Use
  Company Number: IL-ABBVIE-20K-082-3348384-00

PATIENT
  Sex: Female

DRUGS (2)
  1. DUODOPA [Suspect]
     Active Substance: CARBIDOPA\LEVODOPA
     Indication: PARKINSON^S DISEASE
     Route: 050
     Dates: start: 20171104
  2. DUODOPA [Suspect]
     Active Substance: CARBIDOPA\LEVODOPA
     Dosage: CURRENT MD - 8 ML, CONTINUOUS RATE- 3.5 ML/ HOUR, CURRENT ND- 2.8 ML?CURRENT ED- 2.6 ML
     Route: 050

REACTIONS (6)
  - Urinary tract infection [Unknown]
  - Stoma site erythema [Unknown]
  - Feeling abnormal [Unknown]
  - Decreased appetite [Unknown]
  - Pneumonia [Fatal]
  - Pain [Unknown]
